FAERS Safety Report 17405578 (Version 4)
Quarter: 2020Q2

REPORT INFORMATION
  Report Type: Spontaneous
  Country: US (occurrence: US)
  Receive Date: 20200212
  Receipt Date: 20200604
  Transmission Date: 20200713
  Serious: Yes (Other)
  Sender: FDA-Public Use
  Company Number: US-UNITED THERAPEUTICS-UNT-2020-001871

PATIENT
  Sex: Female
  Weight: 71.2 kg

DRUGS (3)
  1. REMODULIN [Suspect]
     Active Substance: TREPROSTINIL
     Indication: PULMONARY ARTERIAL HYPERTENSION
     Dosage: 0.054 ?G/KG, CONTINUING
     Route: 058
     Dates: start: 20170224
  2. REMODULIN [Suspect]
     Active Substance: TREPROSTINIL
     Indication: PULMONARY ARTERIAL HYPERTENSION
     Dosage: 0.053 ?G/KG, CONTINUING
     Route: 058
  3. REMODULIN [Suspect]
     Active Substance: TREPROSTINIL
     Dosage: 0.0648 ?G/KG, CONTINUING
     Route: 058

REACTIONS (5)
  - Weight decreased [Unknown]
  - Malaise [Not Recovered/Not Resolved]
  - Infusion site haemorrhage [Unknown]
  - Pain [Unknown]
  - Nausea [Unknown]
